FAERS Safety Report 22261995 (Version 1)
Quarter: 2023Q2

REPORT INFORMATION
  Report Type: Spontaneous
  Country: CA (occurrence: CA)
  Receive Date: 20230428
  Receipt Date: 20230428
  Transmission Date: 20230722
  Serious: Yes (Other)
  Sender: FDA-Public Use
  Company Number: CA-CELLTRION INC.-2019CA024602

PATIENT

DRUGS (20)
  1. INFLECTRA [Suspect]
     Active Substance: INFLIXIMAB-DYYB
     Indication: Colitis ulcerative
     Dosage: 500 MG, EVERY (Q) 0, 2 , 6 AND THEN EVERY 8 WEEKS
     Route: 042
     Dates: start: 20190828, end: 20221014
  2. INFLECTRA [Suspect]
     Active Substance: INFLIXIMAB-DYYB
     Dosage: 500 MG, EVERY (Q) 0, 2 , 6 AND THEN EVERY 8 WEEKS
     Route: 042
     Dates: start: 20190912
  3. INFLECTRA [Suspect]
     Active Substance: INFLIXIMAB-DYYB
     Dosage: 500 MG, EVERY (Q) 0, 2 , 6 AND THEN EVERY 8 WEEKS
     Route: 042
     Dates: start: 20191009
  4. INFLECTRA [Suspect]
     Active Substance: INFLIXIMAB-DYYB
     Dosage: 500 MG, EVERY (Q) 0, 2 , 6 AND THEN EVERY 8 WEEKS
     Route: 042
     Dates: start: 20191210
  5. INFLECTRA [Suspect]
     Active Substance: INFLIXIMAB-DYYB
     Dosage: 500 MG, EVERY (Q) 0, 2 , 6 AND THEN EVERY 8 WEEKS
     Route: 042
     Dates: start: 20200204
  6. INFLECTRA [Suspect]
     Active Substance: INFLIXIMAB-DYYB
     Dosage: 500 MG, EVERY (Q) 0, 2 , 6 AND THEN EVERY 8 WEEKS
     Route: 042
     Dates: start: 20200330
  7. INFLECTRA [Suspect]
     Active Substance: INFLIXIMAB-DYYB
     Dosage: 500 MG, EVERY (Q) 0, 2 , 6 AND THEN EVERY 8 WEEKS
     Route: 042
     Dates: start: 20200616
  8. INFLECTRA [Suspect]
     Active Substance: INFLIXIMAB-DYYB
     Dosage: 500 MG, EVERY (Q) 0, 2 , 6 AND THEN EVERY 8 WEEKS
     Route: 042
     Dates: start: 20200616
  9. INFLECTRA [Suspect]
     Active Substance: INFLIXIMAB-DYYB
     Dosage: 500 MG, EVERY (Q) 0, 2 , 6 AND THEN EVERY 8 WEEKS
     Route: 042
     Dates: start: 20200814
  10. INFLECTRA [Suspect]
     Active Substance: INFLIXIMAB-DYYB
     Dosage: 500 MG, EVERY (Q) 0, 2 , 6 AND THEN EVERY 8 WEEKS
     Route: 042
     Dates: start: 20201009
  11. INFLECTRA [Suspect]
     Active Substance: INFLIXIMAB-DYYB
     Dosage: 500 MG, EVERY (Q) 0, 2 , 6 AND THEN EVERY 8 WEEKS
     Route: 042
     Dates: start: 20201204
  12. INFLECTRA [Suspect]
     Active Substance: INFLIXIMAB-DYYB
     Dosage: 500 MG, EVERY (Q) 0, 2 , 6 AND THEN EVERY 8 WEEKS
     Route: 042
     Dates: start: 20210129
  13. INFLECTRA [Suspect]
     Active Substance: INFLIXIMAB-DYYB
     Dosage: 500 MG, EVERY (Q) 0, 2 , 6 AND THEN EVERY 8 WEEKS
     Route: 042
     Dates: start: 20210129
  14. INFLECTRA [Suspect]
     Active Substance: INFLIXIMAB-DYYB
     Dosage: 500 MG, EVERY (Q) 0, 2 , 6 AND THEN EVERY 8 WEEKS
     Route: 042
     Dates: start: 20221014
  15. INFLECTRA [Suspect]
     Active Substance: INFLIXIMAB-DYYB
     Dosage: 10 MG/KG
     Route: 042
     Dates: start: 20221209
  16. INFLECTRA [Suspect]
     Active Substance: INFLIXIMAB-DYYB
     Dosage: 10 MG/KG (980 MG), 6 WEEKS 5 DAYS
     Route: 042
     Dates: start: 20230125
  17. INFLECTRA [Suspect]
     Active Substance: INFLIXIMAB-DYYB
     Dosage: 10 MG/KG EVERY 6 WEEKS
     Route: 042
     Dates: start: 20230308
  18. INFLECTRA [Suspect]
     Active Substance: INFLIXIMAB-DYYB
     Dosage: 900 MG (10 MG/KG) EVERY 6 WEEKS
     Route: 042
     Dates: start: 20230419
  19. ASACOL [Concomitant]
     Active Substance: MESALAMINE
     Dosage: UNK
  20. DAPSONE [Concomitant]
     Active Substance: DAPSONE
     Dosage: UNK

REACTIONS (7)
  - Blood pressure systolic increased [Unknown]
  - Drug level decreased [Not Recovered/Not Resolved]
  - Blood pressure increased [Unknown]
  - Condition aggravated [Recovering/Resolving]
  - Weight increased [Not Recovered/Not Resolved]
  - Off label use [Unknown]
  - Inappropriate schedule of product administration [Unknown]

NARRATIVE: CASE EVENT DATE: 20190828
